FAERS Safety Report 5746426-5 (Version None)
Quarter: 2008Q2

REPORT INFORMATION
  Report Type: 
  Country: None (occurrence: None)
  Receive Date: 20080522
  Receipt Date: 20080516
  Transmission Date: 20081010
  Serious: Yes (Hospitalization)
  Sender: FDA-Public Use
  Company Number: A0728328A

PATIENT
  Age: 28 Year
  Sex: Female

DRUGS (2)
  1. LAMICTAL [Suspect]
     Indication: BIPOLAR DISORDER
     Dosage: 200MG PER DAY
     Route: 048
     Dates: start: 20070501
  2. KLONOPIN [Concomitant]

REACTIONS (6)
  - AMNESIA [None]
  - DYSARTHRIA [None]
  - FEELING ABNORMAL [None]
  - RASH [None]
  - SUICIDE ATTEMPT [None]
  - VISUAL DISTURBANCE [None]
